FAERS Safety Report 6903020-8 (Version None)
Quarter: 2010Q3

REPORT INFORMATION
  Report Type: 
  Country: None (occurrence: None)
  Receive Date: 20100803
  Receipt Date: 20080821
  Transmission Date: 20110219
  Serious: Yes (Other)
  Sender: FDA-Public Use
  Company Number: US-PFIZER INC-2008070419

PATIENT
  Sex: Female
  Weight: 58.97 kg

DRUGS (5)
  1. LYRICA [Suspect]
     Indication: FIBROMYALGIA
     Dates: start: 20080101
  2. LISINOPRIL [Concomitant]
  3. ALL OTHER THERAPEUTIC PRODUCTS [Concomitant]
  4. GLUCOPHAGE [Concomitant]
  5. ACTOS [Concomitant]

REACTIONS (13)
  - ACTIVITIES OF DAILY LIVING IMPAIRED [None]
  - CHEST PAIN [None]
  - DEHYDRATION [None]
  - DISORIENTATION [None]
  - DYSPNOEA [None]
  - IMPAIRED DRIVING ABILITY [None]
  - MUSCULOSKELETAL PAIN [None]
  - PAIN [None]
  - SYNCOPE [None]
  - VIRAL INFECTION [None]
  - VISION BLURRED [None]
  - VISUAL IMPAIRMENT [None]
  - WEIGHT INCREASED [None]
